FAERS Safety Report 8584147-4 (Version None)
Quarter: 2012Q3

REPORT INFORMATION
  Report Type: 
  Country: None (occurrence: None)
  Receive Date: 20120810
  Receipt Date: 20120806
  Transmission Date: 20120928
  Serious: No
  Sender: FDA-Public Use
  Company Number: US-009507513-1208USA002846

PATIENT

DRUGS (7)
  1. SINGULAIR [Suspect]
     Indication: ASTHMA
  2. ATENOLOL [Concomitant]
  3. LISINOPRIL [Concomitant]
  4. OMEPRAZOLE [Concomitant]
  5. ZETIA [Concomitant]
     Route: 048
  6. WARFARIN SODIUM [Concomitant]
  7. SINGULAIR [Suspect]
     Indication: HYPERSENSITIVITY
     Dosage: UNK
     Route: 048
     Dates: end: 20120715

REACTIONS (1)
  - PLATELET COUNT DECREASED [None]
